FAERS Safety Report 9983221 (Version 1)
Quarter: 2014Q1

REPORT INFORMATION
  Report Type: Report from Study
  Country: US (occurrence: US)
  Receive Date: 20140307
  Receipt Date: 20140307
  Transmission Date: 20141002
  Serious: No
  Sender: FDA-Public Use
  Company Number: US-ABBVIE-13P-163-1178284-00

PATIENT
  Age: 66 Year
  Sex: Male

DRUGS (8)
  1. HUMIRA [Suspect]
     Indication: PSORIASIS
     Dates: start: 20131204
  2. METFORMIN [Concomitant]
     Indication: DIABETES MELLITUS
  3. PRADAXA [Concomitant]
     Indication: ANTICOAGULANT THERAPY
  4. VITAMIN D3 [Concomitant]
     Indication: PRODUCT USED FOR UNKNOWN INDICATION
  5. DILTIAZEM [Concomitant]
     Indication: HYPERTENSION
  6. LOVASTATIN [Concomitant]
     Indication: BLOOD CHOLESTEROL INCREASED
  7. LISINOPRIL [Concomitant]
     Indication: HYPERTENSION
  8. ESCITALOPRAM [Concomitant]
     Indication: DEPRESSION

REACTIONS (2)
  - Drug dispensing error [Not Recovered/Not Resolved]
  - Psoriasis [Not Recovered/Not Resolved]
